FAERS Safety Report 9735770 (Version 2)
Quarter: 2015Q3

REPORT INFORMATION
  Report Type: Spontaneous
  Country: US (occurrence: US)
  Receive Date: 20131206
  Receipt Date: 20150804
  Transmission Date: 20151125
  Serious: No
  Sender: FDA-Public Use
  Company Number: US-GILEAD-2009-0023013

PATIENT
  Age: 79 Year
  Sex: Female
  Weight: 117.93 kg

DRUGS (21)
  1. LOVASTATIN. [Concomitant]
     Active Substance: LOVASTATIN
  2. NEXIUM [Suspect]
     Active Substance: ESOMEPRAZOLE MAGNESIUM
  3. BENAZEPRIL [Concomitant]
     Active Substance: BENAZEPRIL HYDROCHLORIDE
  4. OMEPRAZOLE. [Concomitant]
     Active Substance: OMEPRAZOLE
  5. ASPIRIN. [Concomitant]
     Active Substance: ASPIRIN
  6. FUROSEMIDE. [Concomitant]
     Active Substance: FUROSEMIDE
  7. XENICAL [Concomitant]
     Active Substance: ORLISTAT
  8. ADVAIR HFA [Suspect]
     Active Substance: FLUTICASONE PROPIONATE\SALMETEROL XINAFOATE
  9. HYDROCHLOROTHIAZIDE. [Concomitant]
     Active Substance: HYDROCHLOROTHIAZIDE
  10. TYLENOL [Concomitant]
     Active Substance: ACETAMINOPHEN
  11. KLOR-CON [Concomitant]
     Active Substance: POTASSIUM CHLORIDE
  12. LEVOXYL [Suspect]
     Active Substance: LEVOTHYROXINE SODIUM
  13. LESCOL [Concomitant]
     Active Substance: FLUVASTATIN SODIUM
  14. ATACAND [Concomitant]
     Active Substance: CANDESARTAN CILEXETIL
  15. LETAIRIS [Suspect]
     Active Substance: AMBRISENTAN
     Indication: PULMONARY ARTERIAL HYPERTENSION
     Route: 048
     Dates: start: 20090522
  16. ALLOPURINOL. [Concomitant]
     Active Substance: ALLOPURINOL
  17. DILTIAZEM [Concomitant]
     Active Substance: DILTIAZEM
  18. PACERONE [Concomitant]
     Active Substance: AMIODARONE HYDROCHLORIDE
  19. NORVASC [Suspect]
     Active Substance: AMLODIPINE BESYLATE
  20. PREMARIN [Concomitant]
     Active Substance: ESTROGENS, CONJUGATED
  21. BENICAR [Concomitant]
     Active Substance: OLMESARTAN MEDOXOMIL

REACTIONS (3)
  - Abdominal pain upper [Unknown]
  - Dysphagia [Unknown]
  - Dizziness [Unknown]
